FAERS Safety Report 6589355-X (Version None)
Quarter: 2010Q1

REPORT INFORMATION
  Report Type: 
  Country: None (occurrence: None)
  Receive Date: 20100218
  Receipt Date: 20100209
  Transmission Date: 20100710
  Serious: Yes (Other)
  Sender: FDA-Public Use
  Company Number: US-JNJFOC-20100205436

PATIENT
  Sex: Female
  Weight: 59.88 kg

DRUGS (8)
  1. TOPAMAX [Suspect]
     Indication: NEUROPATHY PERIPHERAL
     Route: 048
  2. TOPAMAX [Suspect]
     Route: 048
  3. AROMASIN [Suspect]
     Indication: BREAST CANCER
     Route: 048
  4. ARIMIDEX [Suspect]
     Indication: BREAST CANCER
     Route: 065
  5. PRILOSEC [Concomitant]
     Indication: HIATUS HERNIA
     Route: 065
  6. PRILOSEC [Concomitant]
     Indication: GASTROOESOPHAGEAL REFLUX DISEASE
     Route: 065
  7. CALTRATE [Concomitant]
     Indication: OSTEOPENIA
     Route: 065
  8. VITAMIN D [Concomitant]
     Route: 065

REACTIONS (5)
  - BLOOD PRESSURE INCREASED [None]
  - CHEST DISCOMFORT [None]
  - GLUCOSE TOLERANCE IMPAIRED [None]
  - NEUROPATHY PERIPHERAL [None]
  - PALPITATIONS [None]
